FAERS Safety Report 5017339-1 (Version None)
Quarter: 2006Q2

REPORT INFORMATION
  Report Type: 
  Country: None (occurrence: None)
  Receive Date: 20060414
  Receipt Date: 20060228
  Transmission Date: 20061013
  Serious: No
  Sender: FDA-Public Use
  Company Number: 2006SP000997

PATIENT
  Age: 63 Year
  Sex: Female
  Weight: 53.978 kg

DRUGS (8)
  1. LUNESTA [Suspect]
     Indication: INSOMNIA
     Dosage: 3 MG; HS; ORAL
     Route: 048
     Dates: start: 20060227
  2. FLONASE [Concomitant]
  3. CELEBREX [Concomitant]
  4. ATORVASTATIN CALCIUM [Concomitant]
  5. PREVACID [Concomitant]
  6. QUININE SULFATE [Concomitant]
  7. MULTIVITAMIN [Concomitant]
  8. TROSPIUM CHLORIDE [Concomitant]

REACTIONS (1)
  - RESTLESS LEGS SYNDROME [None]
